FAERS Safety Report 5679223-X (Version None)
Quarter: 2008Q1

REPORT INFORMATION
  Report Type: 
  Country: None (occurrence: None)
  Receive Date: 20080325
  Receipt Date: 20080324
  Transmission Date: 20080703
  Serious: Yes (Other)
  Sender: FDA-Public Use
  Company Number: US-BRISTOL-MYERS SQUIBB COMPANY-14124507

PATIENT

DRUGS (1)
  1. AVAPRO [Suspect]
     Route: 048

REACTIONS (1)
  - CHORIORETINOPATHY [None]
